FAERS Safety Report 11787460 (Version 1)
Quarter: 2015Q4

REPORT INFORMATION
  Report Type: Spontaneous
  Country: US (occurrence: US)
  Receive Date: 20151130
  Receipt Date: 20151130
  Transmission Date: 20160305
  Serious: Yes (Hospitalization, Other)
  Sender: FDA-Public Use
  Company Number: US-CELGENE-USA-2015110372

PATIENT
  Sex: Female
  Weight: 127.12 kg

DRUGS (1)
  1. REVLIMID [Suspect]
     Active Substance: LENALIDOMIDE
     Indication: PLASMA CELL MYELOMA
     Dosage: 25 MILLIGRAM
     Route: 048
     Dates: start: 201510

REACTIONS (6)
  - Dyspnoea [Unknown]
  - Atrial fibrillation [Unknown]
  - Oropharyngeal pain [Unknown]
  - Musculoskeletal disorder [Unknown]
  - Dizziness [Unknown]
  - Lung disorder [Unknown]

NARRATIVE: CASE EVENT DATE: 2015
